FAERS Safety Report 9851187 (Version 1)
Quarter: 2014Q1

REPORT INFORMATION
  Report Type: Spontaneous
  Country: US (occurrence: US)
  Receive Date: 20140128
  Receipt Date: 20140128
  Transmission Date: 20141002
  Serious: No
  Sender: FDA-Public Use
  Company Number: US-SA-2013SA110048

PATIENT
  Age: 88 Year
  Sex: Female

DRUGS (3)
  1. LASIX [Suspect]
     Route: 065
  2. ZOLOFT [Interacting]
     Indication: DEPRESSION
     Route: 065
  3. COUMADIN [Interacting]
     Route: 065

REACTIONS (2)
  - International normalised ratio increased [Unknown]
  - Drug interaction [Unknown]
